FAERS Safety Report 6141153-7 (Version None)
Quarter: 2009Q2

REPORT INFORMATION
  Report Type: 
  Country: None (occurrence: None)
  Receive Date: 20090402
  Receipt Date: 20090324
  Transmission Date: 20091009
  Serious: Yes (Death, Hospitalization)
  Sender: FDA-Public Use
  Company Number: US-NOVOPROD-285619

PATIENT
  Sex: Female

DRUGS (1)
  1. LEVEMIR [Suspect]
     Indication: DIABETES MELLITUS
     Dosage: 10 IU, QD
     Route: 058

REACTIONS (5)
  - ACUTE MYOCARDIAL INFARCTION [None]
  - BLOOD GLUCOSE INCREASED [None]
  - CHEST PAIN [None]
  - INJECTION SITE ERYTHEMA [None]
  - INJECTION SITE PAIN [None]
